FAERS Safety Report 14334143 (Version 1)
Quarter: 2017Q4

REPORT INFORMATION
  Report Type: Spontaneous
  Country: DE (occurrence: DE)
  Receive Date: 20171228
  Receipt Date: 20171228
  Transmission Date: 20180321
  Serious: Yes (Hospitalization)
  Sender: FDA-Public Use
  Company Number: DE-009507513-1712DEU010178

PATIENT
  Age: 61 Year
  Sex: Female

DRUGS (11)
  1. LORAZEPAM. [Interacting]
     Active Substance: LORAZEPAM
     Indication: GENERALISED ANXIETY DISORDER
     Dosage: AS NECESSARY
  2. OXYGEN. [Concomitant]
     Active Substance: OXYGEN
  3. ALBUTEROL (+) IPRATROPIUM BROMIDE [Concomitant]
  4. CITALOPRAM [Interacting]
     Active Substance: CITALOPRAM HYDROBROMIDE
     Indication: GENERALISED ANXIETY DISORDER
  5. AMLODIPINE [Concomitant]
     Active Substance: AMLODIPINE BESYLATE
  6. LEVOTHYROXINE SODIUM. [Concomitant]
     Active Substance: LEVOTHYROXINE SODIUM
  7. MIRTAZAPINE. [Suspect]
     Active Substance: MIRTAZAPINE
     Indication: GENERALISED ANXIETY DISORDER
  8. GLYCOPYRROLATE (+) INDACATEROL MALEATE [Concomitant]
  9. ASS 100 [Concomitant]
     Active Substance: ASPIRIN
  10. PANTOPRAZOLE [Concomitant]
     Active Substance: PANTOPRAZOLE
  11. VALSARTAN. [Concomitant]
     Active Substance: VALSARTAN

REACTIONS (2)
  - Coma [Recovered/Resolved]
  - Respiratory failure [Recovered/Resolved]
